FAERS Safety Report 8665692 (Version 2)
Quarter: 2012Q4

REPORT INFORMATION
  Report Type: 
  Country: US (occurrence: US)
  Receive Date: 20120716
  Receipt Date: 20120919
  Transmission Date: 20130627
  Serious: No
  Sender: FDA-Public Use
  Company Number: US-ASTRAZENECA-2012SE44848

PATIENT
  Age: 73 Year
  Sex: Female
  Weight: 55.8 kg

DRUGS (3)
  1. PULMICORT FLEXHALER [Suspect]
     Indication: ASTHMA
     Dosage: 2 PUFFS TWO TIMES A DAY
     Route: 055
     Dates: start: 20120504, end: 20120707
  2. SYMBICORT [Suspect]
     Indication: ASTHMA
     Dosage: 80/ 4.5 MCG, 2 PUFFS TWO TIMES A DAY
     Route: 055
     Dates: start: 20120607
  3. LEVOTHYROXINE [Concomitant]
     Indication: HYPOTHYROIDISM

REACTIONS (3)
  - Sleep disorder due to general medical condition, insomnia type [Unknown]
  - Pain in extremity [Unknown]
  - Muscle spasms [Recovered/Resolved]
